FAERS Safety Report 9632192 (Version 3)
Quarter: 2013Q4

REPORT INFORMATION
  Report Type: Spontaneous
  Country: TW (occurrence: TW)
  Receive Date: 20131018
  Receipt Date: 20131115
  Transmission Date: 20140711
  Serious: Yes (Hospitalization)
  Sender: FDA-Public Use
  Company Number: TW-ABBVIE-13P-153-1139132-00

PATIENT
  Age: 71 Year
  Sex: Male
  Weight: 40 kg

DRUGS (4)
  1. HUMIRA [Suspect]
     Indication: CROHN^S DISEASE
     Route: 058
     Dates: start: 20130711, end: 20130808
  2. MESALAZINE [Concomitant]
     Indication: CROHN^S DISEASE
     Route: 048
     Dates: start: 20130427, end: 20130814
  3. PREDNISOLONE [Concomitant]
     Indication: CROHN^S DISEASE
     Route: 048
     Dates: start: 20130427, end: 20130814
  4. SIMETHICONE [Concomitant]
     Indication: CROHN^S DISEASE
     Route: 048
     Dates: start: 20130427, end: 20130814

REACTIONS (5)
  - Acute respiratory distress syndrome [Not Recovered/Not Resolved]
  - Abdominal pain [Not Recovered/Not Resolved]
  - Vomiting [Not Recovered/Not Resolved]
  - Nausea [Not Recovered/Not Resolved]
  - Intestinal adhesion lysis [Not Recovered/Not Resolved]
